FAERS Safety Report 6456368-8 (Version None)
Quarter: 2009Q4

REPORT INFORMATION
  Report Type: 
  Country: None (occurrence: None)
  Receive Date: 20091124
  Receipt Date: 20091124
  Transmission Date: 20100525
  Serious: Yes (Other)
  Sender: FDA-Public Use
  Company Number: None

PATIENT

DRUGS (1)
  1. LIDOCAINE 1% INJ [Suspect]
     Indication: THERAPEUTIC PROCEDURE
     Dosage: 10 MG/ML
     Dates: start: 20090901

REACTIONS (2)
  - PRODUCT QUALITY ISSUE [None]
  - THERAPEUTIC PRODUCT INEFFECTIVE [None]
